FAERS Safety Report 22289044 (Version 1)
Quarter: 2023Q2

REPORT INFORMATION
  Report Type: Spontaneous
  Country: US (occurrence: None)
  Receive Date: 20230504
  Receipt Date: 20230504
  Transmission Date: 20230721
  Serious: Yes (Other)
  Sender: FDA-Public Use
  Company Number: None

PATIENT
  Sex: Female

DRUGS (6)
  1. MENOPUR [Suspect]
     Active Substance: FOLLITROPIN\LUTEINIZING HORMONE
     Indication: Ovarian cancer
     Dosage: INJECT 75 UNITS UNDER THE SKIN (SUBCUTANEOUS INJECTION) IN THE EVENING AS DIRECTED?
     Route: 058
     Dates: start: 20230503
  2. MENOPUR [Suspect]
     Active Substance: FOLLITROPIN\LUTEINIZING HORMONE
     Dosage: OTHER QUANTITY : 75 UNITS;?FREQUENCY : AS DIRECTED;?
     Route: 058
  3. ADDERALL [Concomitant]
     Active Substance: AMPHETAMINE ASPARTATE\AMPHETAMINE SULFATE\DEXTROAMPHETAMINE SACCHARATE\DEXTROAMPHETAMINE SULFATE
  4. LEXAPRO [Concomitant]
     Active Substance: ESCITALOPRAM OXALATE
  5. NOVAREL [Concomitant]
     Active Substance: CHORIOGONADOTROPIN ALFA
  6. PROTONIX [Concomitant]
     Active Substance: PANTOPRAZOLE SODIUM

REACTIONS (3)
  - Fluid retention [None]
  - Pain in extremity [None]
  - Surgery [None]
